FAERS Safety Report 10715047 (Version 1)
Quarter: 2015Q1

REPORT INFORMATION
  Report Type: Spontaneous
  Country: US (occurrence: US)
  Receive Date: 20150115
  Receipt Date: 20150115
  Transmission Date: 20150721
  Serious: Yes (Death, Other)
  Sender: FDA-Public Use
  Company Number: US-GLAXOSMITHKLINE-US2015GSK003072

PATIENT
  Age: 26 Year
  Sex: Female

DRUGS (5)
  1. INSULIN [Suspect]
     Active Substance: INSULIN NOS
     Route: 065
  2. GUANFACINE. [Suspect]
     Active Substance: GUANFACINE
     Route: 065
  3. CARVEDILOL. [Suspect]
     Active Substance: CARVEDILOL
     Route: 065
  4. SALICYLATE [Suspect]
     Active Substance: SALICYLIC ACID
     Route: 065
  5. NEBIVOLOL [Suspect]
     Active Substance: NEBIVOLOL
     Route: 065

REACTIONS (1)
  - Completed suicide [Fatal]
